FAERS Safety Report 9717656 (Version 1)
Quarter: 2013Q4

REPORT INFORMATION
  Report Type: Spontaneous
  Country: RU (occurrence: RU)
  Receive Date: 20131127
  Receipt Date: 20131127
  Transmission Date: 20140711
  Serious: Yes (Other)
  Sender: FDA-Public Use
  Company Number: RU-ASTRAZENECA-2013SE85155

PATIENT
  Age: 49 Year
  Sex: Male

DRUGS (3)
  1. BETALOC ZOK [Suspect]
     Indication: ARRHYTHMIA
     Route: 048
     Dates: start: 2011
  2. BETALOC ZOK [Suspect]
     Indication: ARRHYTHMIA
     Route: 048
     Dates: start: 20131112, end: 20131115
  3. BETALOC ZOK [Suspect]
     Indication: ARRHYTHMIA
     Route: 048

REACTIONS (3)
  - Asphyxia [Recovered/Resolved]
  - Angina pectoris [Recovered/Resolved]
  - Tachycardia [Recovered/Resolved]
